FAERS Safety Report 4411380-5 (Version None)
Quarter: 2004Q3

REPORT INFORMATION
  Report Type: 
  Country: None (occurrence: None)
  Receive Date: 20040727
  Receipt Date: 20040719
  Transmission Date: 20050211
  Serious: Yes (Death)
  Sender: FDA-Public Use
  Company Number: 2004AP03788

PATIENT
  Age: 55 Year
  Sex: Male

DRUGS (5)
  1. IRESSA [Suspect]
     Indication: LUNG ADENOCARCINOMA
     Dosage: 250 MG DAILY PO
     Route: 048
     Dates: start: 20020901, end: 20030505
  2. CISPLATIN [Concomitant]
  3. DOCETAXEL [Concomitant]
  4. IRINOTECAN [Concomitant]
  5. VINORELBINE TARTRATE [Concomitant]

REACTIONS (18)
  - ANAEMIA [None]
  - BLINDNESS [None]
  - BLOOD LACTATE DEHYDROGENASE INCREASED [None]
  - C-REACTIVE PROTEIN INCREASED [None]
  - CEREBRAL INFARCTION [None]
  - FIBRIN D DIMER INCREASED [None]
  - FIBRIN DEGRADATION PRODUCTS INCREASED [None]
  - HYPOXIA [None]
  - NEOPLASM PROGRESSION [None]
  - PULMONARY HAEMORRHAGE [None]
  - RENAL DISORDER [None]
  - RENAL INFARCT [None]
  - SENSORY LOSS [None]
  - SPLEEN DISORDER [None]
  - SPLENIC INFARCTION [None]
  - THROMBOCYTOPENIA [None]
  - TUMOUR EMBOLISM [None]
  - TUMOUR MARKER INCREASED [None]
